FAERS Safety Report 6607027-X (Version None)
Quarter: 2010Q1

REPORT INFORMATION
  Report Type: 
  Country: None (occurrence: None)
  Receive Date: 20100226
  Receipt Date: 20100218
  Transmission Date: 20100710
  Serious: Yes (Hospitalization)
  Sender: FDA-Public Use
  Company Number: US-AMGEN-QUU393736

PATIENT
  Sex: Female

DRUGS (6)
  1. ENBREL [Suspect]
     Indication: DRUG USE FOR UNKNOWN INDICATION
  2. ORENCIA [Suspect]
  3. ACTOS [Concomitant]
  4. CRESTOR [Concomitant]
  5. LEVOXYL [Concomitant]
  6. UNSPECIFIED STEROIDS [Concomitant]

REACTIONS (1)
  - DERMATITIS BULLOUS [None]
